FAERS Safety Report 4985337-X (Version None)
Quarter: 2006Q1

REPORT INFORMATION
  Report Type: 
  Country: None (occurrence: None)
  Receive Date: 20060309
  Receipt Date: 20050531
  Transmission Date: 20060701
  Serious: Yes (Other)
  Sender: FDA-Public Use
  Company Number: 406500

PATIENT

DRUGS (1)
  1. ACCUTANE [Suspect]

REACTIONS (2)
  - NO ADVERSE EFFECT [None]
  - PREGNANCY [None]
